FAERS Safety Report 5401499-4 (Version None)
Quarter: 2007Q3

REPORT INFORMATION
  Report Type: 
  Country: None (occurrence: None)
  Receive Date: 20070731
  Receipt Date: 20070301
  Transmission Date: 20080115
  Serious: No
  Sender: FDA-Public Use
  Company Number: A0641502A

PATIENT
  Age: 53 Year
  Sex: Female

DRUGS (2)
  1. DYAZIDE [Suspect]
     Route: 048
  2. MAXZIDE [Suspect]

REACTIONS (2)
  - BLISTER [None]
  - FALL [None]
